FAERS Safety Report 4320119-3 (Version None)
Quarter: 2004Q1

REPORT INFORMATION
  Report Type: 
  Country: None (occurrence: None)
  Receive Date: 20040317
  Receipt Date: 20040305
  Transmission Date: 20041129
  Serious: Yes (Hospitalization, Other)
  Sender: FDA-Public Use
  Company Number: NSADSS2002000032

PATIENT
  Age: 74 Year
  Sex: Female
  Weight: 61.2356 kg

DRUGS (10)
  1. REMICADE [Suspect]
     Indication: RHEUMATOID ARTHRITIS
     Dosage: 3 MG/KG, INTRAVENOUS DRIP
     Route: 041
     Dates: start: 20010101, end: 20010101
  2. REMICADE [Suspect]
     Indication: RHEUMATOID ARTHRITIS
     Dosage: 3 MG/KG, INTRAVENOUS DRIP
     Route: 041
     Dates: start: 20020105, end: 20020105
  3. PREDNISONE [Concomitant]
  4. SECTRAL [Concomitant]
  5. LANOXIN [Concomitant]
  6. NAPROSYN [Concomitant]
  7. SECTRAL (ACEBUTOLOL HYDROCHLORIDE) C [Concomitant]
  8. VICODIN [Concomitant]
  9. HYZAAR [Concomitant]
  10. ZITHROMAX [Concomitant]

REACTIONS (7)
  - BRONCHITIS [None]
  - DRUG INEFFECTIVE [None]
  - GALLBLADDER DISORDER [None]
  - INFLUENZA [None]
  - INFUSION RELATED REACTION [None]
  - MUSCLE SPASMS [None]
  - UPPER RESPIRATORY TRACT INFECTION [None]
